FAERS Safety Report 20921371 (Version 1)
Quarter: 2022Q2

REPORT INFORMATION
  Report Type: Spontaneous
  Country: PT (occurrence: PT)
  Receive Date: 20220606
  Receipt Date: 20220606
  Transmission Date: 20220721
  Serious: Yes (Disabling)
  Sender: FDA-Public Use
  Company Number: None

PATIENT
  Age: 58 Year
  Sex: Male
  Weight: 87 kg

DRUGS (4)
  1. OLUMIANT [Suspect]
     Active Substance: BARICITINIB
     Indication: Dermatitis atopic
     Dosage: UNK UNK, UNKNOWN
     Route: 048
     Dates: start: 20220203
  2. PANTOPRAZOL BLUEFISH [Concomitant]
     Indication: Product used for unknown indication
  3. CLOXAM [AMPICILLIN SODIUM;CLOXACILLIN SODIUM] [Concomitant]
     Indication: Product used for unknown indication
  4. EDARCLOR [Concomitant]
     Indication: Product used for unknown indication

REACTIONS (7)
  - Diarrhoea [Unknown]
  - Dizziness [Unknown]
  - Dyslipidaemia [Unknown]
  - Hypertriglyceridaemia [Unknown]
  - Abdominal pain [Recovered/Resolved]
  - Transaminases increased [Unknown]
  - Nausea [Recovered/Resolved]

NARRATIVE: CASE EVENT DATE: 20220326
